FAERS Safety Report 11003188 (Version 1)
Quarter: 2015Q2

REPORT INFORMATION
  Report Type: Spontaneous
  Country: US (occurrence: None)
  Receive Date: 20150407
  Receipt Date: 20150407
  Transmission Date: 20150821
  Serious: Yes (Death, Hospitalization)
  Sender: FDA-Public Use
  Company Number: INS201504-000114

PATIENT
  Age: 67 Year
  Sex: Female
  Weight: 54.43 kg

DRUGS (2)
  1. CALCIUM [Concomitant]
     Active Substance: CALCIUM
  2. SUBSYS [Suspect]
     Active Substance: FENTANYL
     Indication: PAIN
     Dosage: 120 UNITS
     Dates: start: 20150224

REACTIONS (2)
  - Metastatic neoplasm [None]
  - Bronchial carcinoma [None]

NARRATIVE: CASE EVENT DATE: 20150320
